FAERS Safety Report 5520606-6 (Version None)
Quarter: 2007Q4

REPORT INFORMATION
  Report Type: 
  Country: None (occurrence: None)
  Receive Date: 20071119
  Receipt Date: 20071105
  Transmission Date: 20080405
  Serious: Yes (Death, Life-Threatening, Hospitalization, Other)
  Sender: FDA-Public Use
  Company Number: PE-PFIZER INC-2007084738

PATIENT
  Age: 25 Year
  Sex: Male

DRUGS (13)
  1. SOLU-CORTEF [Suspect]
     Indication: STEVENS-JOHNSON SYNDROME
     Route: 042
  2. ZIDOVUDINE [Concomitant]
  3. MEASLES VIRUS VACCINE [Concomitant]
  4. LAMIVUDINE [Concomitant]
  5. NEVIRAPINE [Concomitant]
  6. CHLORPHENIRAMINE TAB [Concomitant]
     Route: 042
  7. RANITIDINE [Concomitant]
     Route: 042
  8. GENTAMICIN [Concomitant]
     Route: 061
  9. ALL OTHER THERAPEUTIC PRODUCTS [Concomitant]
     Route: 047
  10. VANCOMYCIN [Concomitant]
  11. IMIPENEM [Concomitant]
  12. FLUCONAZOLE [Concomitant]
  13. IMMUNE GLOBULIN (HUMAN) [Concomitant]
     Dosage: TEXT:0.75G/KG
     Route: 042

REACTIONS (6)
  - ACUTE RESPIRATORY FAILURE [None]
  - MULTI-ORGAN FAILURE [None]
  - NEUTROPENIA [None]
  - PLATELET COUNT DECREASED [None]
  - PNEUMOTHORAX [None]
  - SEPTIC SHOCK [None]
